FAERS Safety Report 16794123 (Version 1)
Quarter: 2019Q3

REPORT INFORMATION
  Report Type: Spontaneous
  Country: DE (occurrence: DE)
  Receive Date: 20190911
  Receipt Date: 20190911
  Transmission Date: 20191005
  Serious: Yes (Life-Threatening, Hospitalization, Other)
  Sender: FDA-Public Use
  Company Number: DE-ACCORD-154533

PATIENT
  Age: 72 Year
  Sex: Female
  Weight: 90 kg

DRUGS (2)
  1. DAPTOMYCIN ACCORD [Suspect]
     Active Substance: DAPTOMYCIN
     Indication: STAPHYLOCOCCAL INFECTION
     Dosage: STRENGTH: 500 MG POWDER FOR SOLUTION FOR INJECTION /INFUSION
     Route: 042
     Dates: start: 20190724, end: 20190814
  2. PIPERACILLIN/TAZOBACTAM [Concomitant]
     Dosage: 4 X 4.5 G
     Dates: start: 20190724, end: 20190806

REACTIONS (2)
  - Respiratory failure [Unknown]
  - Eosinophilic pneumonia [Recovering/Resolving]

NARRATIVE: CASE EVENT DATE: 201908
